FAERS Safety Report 8481023-2 (Version None)
Quarter: 2012Q3

REPORT INFORMATION
  Report Type: 
  Country: None (occurrence: None)
  Receive Date: 20120702
  Receipt Date: 20120620
  Transmission Date: 20120928
  Serious: Yes (Disabling)
  Sender: FDA-Public Use
  Company Number: US-JNJFOC-20120612622

PATIENT
  Sex: Male
  Weight: 97.98 kg

DRUGS (13)
  1. PREDNISONE TAB [Concomitant]
     Indication: MULTIPLE MYELOMA
     Route: 048
     Dates: start: 20120101, end: 20120530
  2. ZYTIGA [Suspect]
     Route: 048
     Dates: start: 20111229, end: 20120101
  3. ZYTIGA [Suspect]
     Indication: MULTIPLE MYELOMA
     Route: 048
     Dates: start: 20120101, end: 20120530
  4. ZYTIGA [Suspect]
     Route: 048
     Dates: start: 20111229, end: 20120101
  5. HUMULIN 70/30 [Concomitant]
     Indication: TYPE 2 DIABETES MELLITUS
     Route: 058
     Dates: start: 20100101
  6. ZYTIGA [Suspect]
     Route: 048
     Dates: start: 20120530, end: 20120613
  7. PREDNISONE TAB [Concomitant]
     Route: 048
     Dates: start: 20120530, end: 20120613
  8. PREDNISONE TAB [Concomitant]
     Route: 048
     Dates: start: 20111229, end: 20120101
  9. PREDNISONE TAB [Concomitant]
     Indication: PROSTATE CANCER METASTATIC
     Route: 048
     Dates: start: 20111229, end: 20120101
  10. ZYTIGA [Suspect]
     Route: 048
     Dates: start: 20120530, end: 20120613
  11. ZYTIGA [Suspect]
     Indication: PROSTATE CANCER METASTATIC
     Route: 048
     Dates: start: 20120101, end: 20120530
  12. PREDNISONE TAB [Concomitant]
     Route: 048
     Dates: start: 20120530, end: 20120613
  13. PREDNISONE TAB [Concomitant]
     Route: 048
     Dates: start: 20120101, end: 20120530

REACTIONS (7)
  - WEIGHT INCREASED [None]
  - FLATULENCE [None]
  - PAIN IN EXTREMITY [None]
  - HOT FLUSH [None]
  - GAIT DISTURBANCE [None]
  - DYSPNOEA [None]
  - CHEST DISCOMFORT [None]
